FAERS Safety Report 8596536-2 (Version None)
Quarter: 2012Q3

REPORT INFORMATION
  Report Type: 
  Country: None (occurrence: None)
  Receive Date: 20120806
  Receipt Date: 20120806
  Transmission Date: 20120928
  Serious: No
  Sender: FDA-Public Use
  Company Number: None

PATIENT
  Age: 83 Year
  Sex: Female
  Weight: 68.0396 kg

DRUGS (1)
  1. DEXILANT [Suspect]
     Indication: DYSPEPSIA
     Dosage: 1 PILL TWICE A DAY PO
     Route: 048
     Dates: start: 20120630, end: 20120722

REACTIONS (8)
  - DYSGEUSIA [None]
  - FLUID INTAKE REDUCED [None]
  - STOMATITIS [None]
  - HYPOPHAGIA [None]
  - OEDEMA MOUTH [None]
  - TONGUE DISORDER [None]
  - SWOLLEN TONGUE [None]
  - PHARYNGEAL OEDEMA [None]
